FAERS Safety Report 9628689 (Version 3)
Quarter: 2014Q2

REPORT INFORMATION
  Report Type: Report from Study
  Country: GR (occurrence: GR)
  Receive Date: 20131017
  Receipt Date: 20140418
  Transmission Date: 20141212
  Serious: Yes (Death, Hospitalization)
  Sender: FDA-Public Use
  Company Number: PHHY2013GR115840

PATIENT
  Age: 72 Year
  Sex: Male

DRUGS (1)
  1. EVEROLIMUS [Suspect]
     Indication: CLEAR CELL RENAL CELL CARCINOMA
     Dosage: 10 MG
     Route: 048
     Dates: start: 20130808, end: 20130916

REACTIONS (10)
  - Cardiopulmonary failure [Fatal]
  - Malignant neoplasm progression [Fatal]
  - Confusional state [Unknown]
  - Blood urea increased [Unknown]
  - Creatinine renal clearance decreased [Unknown]
  - Dehydration [Unknown]
  - Weight decreased [Unknown]
  - Anaemia [Unknown]
  - Fall [Unknown]
  - Decreased appetite [Unknown]
